FAERS Safety Report 5006865-7 (Version None)
Quarter: 2006Q2

REPORT INFORMATION
  Report Type: 
  Country: None (occurrence: None)
  Receive Date: 20060519
  Receipt Date: 20060517
  Transmission Date: 20061013
  Serious: Yes (Hospitalization, Other)
  Sender: FDA-Public Use
  Company Number: FR-BRISTOL-MYERS SQUIBB COMPANY-13381934

PATIENT
  Age: 82 Year
  Sex: Female

DRUGS (4)
  1. COUMADIN [Suspect]
     Route: 048
     Dates: start: 19900615
  2. HEMIGOXINE NATIVELLE [Concomitant]
  3. LEXOMIL [Concomitant]
     Dosage: 1/4 IN THE AM PRN, 1/2 IN THE PM
  4. MOPRAL [Concomitant]

REACTIONS (2)
  - BLADDER CANCER [None]
  - HAEMATURIA [None]
